FAERS Safety Report 13078464 (Version 1)
Quarter: 2017Q1

REPORT INFORMATION
  Report Type: Spontaneous
  Country: ES (occurrence: ES)
  Receive Date: 20170102
  Receipt Date: 20170102
  Transmission Date: 20170428
  Serious: Yes (Other)
  Sender: FDA-Public Use
  Company Number: PHHY2016ES179764

PATIENT
  Age: 22 Year
  Sex: Male

DRUGS (8)
  1. OFLOXACIN. [Suspect]
     Active Substance: OFLOXACIN
     Indication: LEPROSY
     Dosage: UNK
     Route: 065
  2. RIFAMPICIN [Suspect]
     Active Substance: RIFAMPIN
     Route: 065
  3. PREGABALIN. [Suspect]
     Active Substance: PREGABALIN
     Indication: NEURALGIA
     Route: 065
  4. DAPSONE. [Suspect]
     Active Substance: DAPSONE
     Indication: LEPROSY
     Route: 065
  5. CLOFAZIMINE [Suspect]
     Active Substance: CLOFAZIMINE
     Indication: LEPROSY
     Route: 065
  6. RIFAMPICIN [Suspect]
     Active Substance: RIFAMPIN
     Indication: LEPROSY
     Route: 065
  7. DAPSONE. [Suspect]
     Active Substance: DAPSONE
     Route: 065
  8. CLOFAZIMINE [Suspect]
     Active Substance: CLOFAZIMINE
     Route: 065

REACTIONS (2)
  - Exposure via father [Unknown]
  - Type 1 lepra reaction [Unknown]
